FAERS Safety Report 10056420 (Version 3)
Quarter: 2014Q2

REPORT INFORMATION
  Report Type: Spontaneous
  Country: JP (occurrence: JP)
  Receive Date: 20140403
  Receipt Date: 20140507
  Transmission Date: 20141212
  Serious: Yes (Hospitalization, Other)
  Sender: FDA-Public Use
  Company Number: JP-TAKEDA-2014TJP004436

PATIENT
  Age: 78 Year
  Sex: Male
  Weight: 66.6 kg

DRUGS (7)
  1. NESINA TABLETS 25MG [Suspect]
     Indication: DIABETES MELLITUS
     Dosage: 12.5 MG, QD
     Route: 048
     Dates: start: 201110, end: 201308
  2. NESINA TABLETS 25MG [Suspect]
     Dosage: 25 MG, QD
     Route: 048
     Dates: start: 20131219, end: 20140304
  3. LIPOVAS                            /00848101/ [Concomitant]
     Indication: DYSLIPIDAEMIA
     Dosage: 5 MG, QD
     Route: 048
     Dates: end: 20140304
  4. FEBURIC [Concomitant]
     Indication: HYPERURICAEMIA
     Dosage: 10 MG, QD
     Route: 048
     Dates: end: 20140304
  5. NU-LOTAN [Concomitant]
     Indication: HYPERTENSION
     Dosage: 25 MG, QD
     Route: 048
     Dates: end: 20140306
  6. ALLEGRA [Concomitant]
     Indication: PRURITUS
     Dosage: 60 MG, BID
     Route: 048
  7. ALLEGRA [Concomitant]
     Indication: ECZEMA

REACTIONS (1)
  - Pancreatitis acute [Recovered/Resolved]
